FAERS Safety Report 5801489-3 (Version None)
Quarter: 2008Q3

REPORT INFORMATION
  Report Type: 
  Country: None (occurrence: None)
  Receive Date: 20080707
  Receipt Date: 20080626
  Transmission Date: 20090109
  Serious: Yes (Death, Hospitalization)
  Sender: FDA-Public Use
  Company Number: US-ROCHE-568067

PATIENT
  Sex: Female
  Weight: 83.9 kg

DRUGS (7)
  1. XELODA [Suspect]
     Dosage: DOSAGE: 3 IN MORNING AND 3 IN EVENING
     Route: 065
     Dates: start: 20080502, end: 20080527
  2. XELODA [Suspect]
     Dosage: 14 DAY CYCLE, 7 DAYS OFF
     Route: 065
     Dates: start: 20080426
  3. NEXIUM [Concomitant]
  4. WARFARIN SODIUM [Concomitant]
     Dates: start: 20070101
  5. TOPROL-XL [Concomitant]
  6. MORPHINE [Concomitant]
  7. OXYCODONE HCL [Concomitant]

REACTIONS (8)
  - ABASIA [None]
  - ANOREXIA [None]
  - ASTHENIA [None]
  - BONE NEOPLASM MALIGNANT [None]
  - BRAIN NEOPLASM MALIGNANT [None]
  - CONFUSIONAL STATE [None]
  - NAUSEA [None]
  - URINARY RETENTION [None]
